FAERS Safety Report 21678231 (Version 8)
Quarter: 2023Q2

REPORT INFORMATION
  Report Type: Report from Study
  Country: US (occurrence: US)
  Receive Date: 20221203
  Receipt Date: 20230424
  Transmission Date: 20230722
  Serious: Yes (Other)
  Sender: FDA-Public Use
  Company Number: US-002147023-NVSC2022US280800

PATIENT
  Sex: Female

DRUGS (1)
  1. ENTRESTO [Suspect]
     Active Substance: SACUBITRIL\VALSARTAN
     Indication: Product used for unknown indication
     Dosage: 1 DOSAGE FORM, BID (97/103MG)
     Route: 048

REACTIONS (16)
  - Loss of consciousness [Unknown]
  - Sarcoidosis [Unknown]
  - Sarcoma [Unknown]
  - Arthralgia [Unknown]
  - Pollakiuria [Unknown]
  - Abdominal pain upper [Unknown]
  - Insomnia [Unknown]
  - Nasopharyngitis [Unknown]
  - Liver disorder [Unknown]
  - Blood pressure increased [Unknown]
  - Urinary tract infection [Unknown]
  - Fall [Unknown]
  - Osteoporosis [Unknown]
  - Nausea [Unknown]
  - Dizziness [Unknown]
  - Wrong technique in product usage process [Unknown]
